FAERS Safety Report 5594953-6 (Version None)
Quarter: 2008Q1

REPORT INFORMATION
  Report Type: 
  Country: None (occurrence: None)
  Receive Date: 20080117
  Receipt Date: 20080111
  Transmission Date: 20080703
  Serious: Yes (Congenital Anomaly, Other)
  Sender: FDA-Public Use
  Company Number: GB-TEVA-166273ISR

PATIENT
  Sex: Female

DRUGS (1)
  1. METFORMIN HCL [Suspect]

REACTIONS (1)
  - CLEFT PALATE [None]
